FAERS Safety Report 15889771 (Version 1)
Quarter: 2019Q1

REPORT INFORMATION
  Report Type: Spontaneous
  Country: US (occurrence: US)
  Receive Date: 20190130
  Receipt Date: 20190130
  Transmission Date: 20190417
  Serious: Yes (Death)
  Sender: FDA-Public Use
  Company Number: None

PATIENT
  Age: 87 Year
  Sex: Male

DRUGS (7)
  1. CARBODOPA/LEVADOPA 25/100 MG [Concomitant]
     Dates: start: 20181003
  2. GABAPENTIN 100MG [Concomitant]
     Active Substance: GABAPENTIN
     Dates: start: 20181115
  3. XTANDI [Suspect]
     Active Substance: ENZALUTAMIDE
     Indication: PROSTATE CANCER
     Dates: start: 20181106
  4. PRAMIPEXOLE 0.125 MG [Concomitant]
     Active Substance: PRAMIPEXOLE
     Dates: start: 20181010
  5. ATORVASTATIN 40 MG [Concomitant]
     Active Substance: ATORVASTATIN
     Dates: start: 20180802
  6. METOPROLOL TARTRATE 25MG [Concomitant]
     Active Substance: METOPROLOL TARTRATE
     Dates: start: 20180914
  7. MIRTAZAPINE 15 MG [Concomitant]
     Active Substance: MIRTAZAPINE
     Dates: start: 20181125

REACTIONS (1)
  - Death [None]

NARRATIVE: CASE EVENT DATE: 20190129
